FAERS Safety Report 17080479 (Version 3)
Quarter: 2020Q1

REPORT INFORMATION
  Report Type: Report from Study
  Country: EG (occurrence: EG)
  Receive Date: 20191127
  Receipt Date: 20200225
  Transmission Date: 20200409
  Serious: Yes (Other)
  Sender: FDA-Public Use
  Company Number: NVSC2019EG043942

PATIENT
  Sex: Female

DRUGS (5)
  1. AFINITOR [Suspect]
     Active Substance: EVEROLIMUS
     Indication: BREAST CANCER
     Dosage: 10 MG, QD (ONCE DAILY)
     Route: 048
     Dates: start: 20190917, end: 20191114
  2. NEVILOB [Concomitant]
     Indication: HYPERTENSION
     Dosage: 5 MG
     Route: 065
  3. AROMASIN [Concomitant]
     Active Substance: EXEMESTANE
     Indication: PRODUCT USED FOR UNKNOWN INDICATION
     Dosage: UNK
     Route: 065
     Dates: start: 20190917
  4. AFINITOR [Suspect]
     Active Substance: EVEROLIMUS
     Indication: LYMPHOMA
     Dosage: 5 MG, QD
     Route: 048
  5. B.B.C [Concomitant]
     Indication: PRODUCT USED FOR UNKNOWN INDICATION
     Dosage: UNK
     Route: 065
     Dates: start: 20191117

REACTIONS (10)
  - Stomatitis [Recovering/Resolving]
  - Feeding disorder [Recovered/Resolved]
  - Weight decreased [Not Recovered/Not Resolved]
  - Gingivitis [Recovered/Resolved]
  - Depression [Not Recovered/Not Resolved]
  - Aphasia [Not Recovered/Not Resolved]
  - Ageusia [Not Recovered/Not Resolved]
  - Feeding disorder [Not Recovered/Not Resolved]
  - Tongue fungal infection [Recovered/Resolved]
  - Abscess oral [Not Recovered/Not Resolved]

NARRATIVE: CASE EVENT DATE: 2019
